FAERS Safety Report 10183053 (Version 1)
Quarter: 2014Q2

REPORT INFORMATION
  Report Type: Spontaneous
  Country: US (occurrence: US)
  Receive Date: 20140520
  Receipt Date: 20140520
  Transmission Date: 20141212
  Serious: No
  Sender: FDA-Public Use
  Company Number: US-B.I. PHARMACEUTICALS,INC./RIDGEFIELD-2014-BI-20817BP

PATIENT
  Age: 65 Year
  Sex: Female
  Weight: 50 kg

DRUGS (6)
  1. SPIRIVA [Suspect]
     Indication: CHRONIC OBSTRUCTIVE PULMONARY DISEASE
     Dosage: 18 MCG
     Route: 055
     Dates: start: 201404
  2. SPIRIVA [Suspect]
     Dosage: 18 MCG
     Route: 055
     Dates: start: 201402, end: 201402
  3. IMITREX [Concomitant]
     Indication: MIGRAINE
     Dosage: FORMULATION:SUBCUTANEOUS
     Route: 058
  4. PREDNISONE [Concomitant]
     Indication: CHRONIC OBSTRUCTIVE PULMONARY DISEASE
     Dosage: 3 MG
     Route: 048
  5. NICODERM PATCH [Concomitant]
     Dosage: FORMULATION : PATCH
     Route: 050
  6. COMBIVENT RESPIMAT [Concomitant]
     Indication: CHRONIC OBSTRUCTIVE PULMONARY DISEASE
     Dosage: DOSE PER APPLICATION: 20 MCG PER 100 MCG; DAILY DOSE: 80 MCG PER  400 MCG
     Route: 055
     Dates: start: 201311

REACTIONS (1)
  - Trigeminal neuralgia [Not Recovered/Not Resolved]
